FAERS Safety Report 7075570-8 (Version None)
Quarter: 2010Q4

REPORT INFORMATION
  Report Type: 
  Country: None (occurrence: None)
  Receive Date: 20101030
  Receipt Date: 20101001
  Transmission Date: 20110411
  Serious: No
  Sender: FDA-Public Use
  Company Number: US-WYE-H17968610

PATIENT
  Sex: Female

DRUGS (12)
  1. PRISTIQ [Suspect]
     Indication: GENERALISED ANXIETY DISORDER
     Dates: start: 20100922
  2. CELEXA [Concomitant]
  3. VISTARIL [Concomitant]
  4. IMITREX [Concomitant]
  5. TRANXENE [Concomitant]
  6. RANITIDINE [Concomitant]
  7. PROTONIX [Concomitant]
  8. ADVAIR DISKUS 100/50 [Concomitant]
  9. PROVENTIL [Concomitant]
  10. NEURONTIN [Interacting]
     Indication: MIGRAINE
     Dates: end: 20100901
  11. NEURONTIN [Interacting]
     Dosage: INCREASED TO UNKNOWN DOSE
     Dates: start: 20100901, end: 20100901
  12. LEVOTHYROXINE [Concomitant]

REACTIONS (7)
  - ARTHRALGIA [None]
  - CANDIDIASIS [None]
  - DRUG INTERACTION [None]
  - JOINT STIFFNESS [None]
  - MUSCULOSKELETAL STIFFNESS [None]
  - PAIN IN EXTREMITY [None]
  - TONGUE DISORDER [None]
